FAERS Safety Report 23543923 (Version 18)
Quarter: 2025Q2

REPORT INFORMATION
  Report Type: Report from Study
  Country: CA (occurrence: CA)
  Receive Date: 20240220
  Receipt Date: 20250529
  Transmission Date: 20250717
  Serious: Yes (Hospitalization, Other)
  Sender: JOHNSON AND JOHNSON
  Company Number: CA-JNJFOC-20231250070

PATIENT
  Age: 28 Year
  Sex: Female
  Weight: 78 kg

DRUGS (14)
  1. SIMPONI [Suspect]
     Active Substance: GOLIMUMAB
     Indication: Rheumatoid arthritis
     Dosage: 12.50 MG/ML
     Route: 041
     Dates: start: 20231120
  2. SIMPONI [Suspect]
     Active Substance: GOLIMUMAB
     Route: 041
     Dates: start: 20231218
  3. SIMPONI [Suspect]
     Active Substance: GOLIMUMAB
     Route: 041
  4. SIMPONI [Suspect]
     Active Substance: GOLIMUMAB
     Route: 041
     Dates: start: 20240408
  5. SIMPONI [Suspect]
     Active Substance: GOLIMUMAB
     Route: 041
     Dates: start: 20241104
  6. SIMPONI [Suspect]
     Active Substance: GOLIMUMAB
     Route: 041
  7. SIMPONI [Suspect]
     Active Substance: GOLIMUMAB
     Route: 041
     Dates: start: 20240813
  8. SIMPONI [Suspect]
     Active Substance: GOLIMUMAB
     Dosage: MOST RECENT DOSE OF GOLIMUMAB INFUSION APPLICATION WAS ON 04-NOV-2024
     Route: 041
  9. SIMPONI [Suspect]
     Active Substance: GOLIMUMAB
     Route: 041
  10. SIMPONI [Suspect]
     Active Substance: GOLIMUMAB
     Route: 041
  11. SIMPONI [Suspect]
     Active Substance: GOLIMUMAB
     Route: 041
     Dates: start: 20231120
  12. SULFASALAZINE [Suspect]
     Active Substance: SULFASALAZINE
     Indication: Rheumatoid arthritis
     Route: 065
  13. CORTISONE [Concomitant]
     Active Substance: CORTISONE
     Indication: Product used for unknown indication
  14. CORTISONE [Concomitant]
     Active Substance: CORTISONE
     Dates: start: 20240507

REACTIONS (14)
  - Abortion spontaneous [Recovering/Resolving]
  - Rheumatoid arthritis [Recovering/Resolving]
  - Agranulocytosis [Not Recovered/Not Resolved]
  - Influenza [Unknown]
  - Ageusia [Unknown]
  - Lymphadenopathy [Not Recovered/Not Resolved]
  - COVID-19 [Recovered/Resolved]
  - Arthralgia [Not Recovered/Not Resolved]
  - Arthralgia [Recovering/Resolving]
  - Product ineffective [Unknown]
  - Exposure during pregnancy [Recovered/Resolved]
  - Off label use [Unknown]
  - Inappropriate schedule of product administration [Unknown]
  - Product ineffective [Unknown]

NARRATIVE: CASE EVENT DATE: 20231201
